FAERS Safety Report 7554206-3 (Version None)
Quarter: 2011Q2

REPORT INFORMATION
  Report Type: 
  Country: None (occurrence: None)
  Receive Date: 20110617
  Receipt Date: 20110615
  Transmission Date: 20111010
  Serious: No
  Sender: FDA-Public Use
  Company Number: US-PFIZER INC-2011131736

PATIENT
  Age: 84 Year
  Sex: Male
  Weight: 54.4 kg

DRUGS (1)
  1. GABAPENTIN [Suspect]
     Indication: NEURALGIA
     Dosage: 1500 MG, 1X/DAY
     Route: 048

REACTIONS (3)
  - SOMNOLENCE [None]
  - FATIGUE [None]
  - DIZZINESS [None]
